FAERS Safety Report 22099167 (Version 1)
Quarter: 2023Q1

REPORT INFORMATION
  Report Type: Spontaneous
  Country: US (occurrence: None)
  Receive Date: 20230314
  Receipt Date: 20230314
  Transmission Date: 20230418
  Serious: Yes (Other)
  Sender: FDA-Public Use
  Company Number: None

PATIENT
  Sex: Male

DRUGS (9)
  1. PERTZYE [Suspect]
     Active Substance: PANCRELIPASE AMYLASE\PANCRELIPASE LIPASE\PANCRELIPASE PROTEASE
     Indication: Infective pulmonary exacerbation of cystic fibrosis
     Dosage: OTHER QUANTITY : 16000-57500 UNIT;?FREQUENCY : 3 TIMES A DAY;?
     Route: 048
     Dates: start: 20160415
  2. PERTZYE [Suspect]
     Active Substance: PANCRELIPASE AMYLASE\PANCRELIPASE LIPASE\PANCRELIPASE PROTEASE
     Dosage: FREQUENCY : DAILY;?
     Route: 048
  3. ALBUTEROL [Concomitant]
     Active Substance: ALBUTEROL
  4. VENTOL GEQ [Concomitant]
  5. BENZTROPINE [Concomitant]
  6. DEKAS PLUS CHEWABLES [Concomitant]
  7. RISPERDAL [Concomitant]
  8. SPIRIVA [Concomitant]
  9. WELLBUTRIN [Concomitant]

REACTIONS (3)
  - Cough [None]
  - Nasopharyngitis [None]
  - Product prescribing error [None]
